FAERS Safety Report 25773279 (Version 1)
Quarter: 2025Q3

REPORT INFORMATION
  Report Type: Spontaneous
  Country: US (occurrence: US)
  Receive Date: 20250908
  Receipt Date: 20250908
  Transmission Date: 20251020
  Serious: Yes (Life-Threatening, Hospitalization)
  Sender: MYLAN
  Company Number: US-MYLANLABS-2025M1074463

PATIENT
  Age: 50 Year
  Sex: Male

DRUGS (16)
  1. AMIODARONE [Suspect]
     Active Substance: AMIODARONE
     Indication: Ventricular fibrillation
  2. AMIODARONE [Suspect]
     Active Substance: AMIODARONE
     Route: 065
  3. AMIODARONE [Suspect]
     Active Substance: AMIODARONE
     Route: 065
  4. AMIODARONE [Suspect]
     Active Substance: AMIODARONE
  5. LIDOCAINE [Suspect]
     Active Substance: LIDOCAINE
     Indication: Ventricular fibrillation
  6. LIDOCAINE [Suspect]
     Active Substance: LIDOCAINE
     Route: 065
  7. LIDOCAINE [Suspect]
     Active Substance: LIDOCAINE
     Route: 065
  8. LIDOCAINE [Suspect]
     Active Substance: LIDOCAINE
  9. ALTEPLASE [Suspect]
     Active Substance: ALTEPLASE
     Indication: Acute myocardial infarction
  10. ALTEPLASE [Suspect]
     Active Substance: ALTEPLASE
     Route: 065
  11. ALTEPLASE [Suspect]
     Active Substance: ALTEPLASE
     Route: 065
  12. ALTEPLASE [Suspect]
     Active Substance: ALTEPLASE
  13. FLUOROURACIL [Concomitant]
     Active Substance: FLUOROURACIL
     Indication: Colon cancer
  14. FLUOROURACIL [Concomitant]
     Active Substance: FLUOROURACIL
     Route: 065
  15. FLUOROURACIL [Concomitant]
     Active Substance: FLUOROURACIL
     Route: 065
  16. FLUOROURACIL [Concomitant]
     Active Substance: FLUOROURACIL

REACTIONS (1)
  - Drug ineffective [Unknown]
